FAERS Safety Report 23074551 (Version 1)
Quarter: 2023Q4

REPORT INFORMATION
  Report Type: Other
  Country: None (occurrence: US)
  Receive Date: 20231017
  Receipt Date: 20231017
  Transmission Date: 20240109
  Serious: Yes (Hospitalization)
  Sender: FDA-Public Use
  Company Number: US-Marksans Pharma Limited-2147159

PATIENT
  Age: 77 Year
  Sex: Female

DRUGS (3)
  1. DULOXETINE [Suspect]
     Active Substance: DULOXETINE
     Route: 048
  2. METHYLPHENIDATE [Concomitant]
     Active Substance: METHYLPHENIDATE
     Route: 048
  3. POTASSIUM [Concomitant]
     Active Substance: POTASSIUM
     Route: 048

REACTIONS (1)
  - Cataplexy [Recovered/Resolved]
